FAERS Safety Report 10714688 (Version 2)
Quarter: 2015Q1

REPORT INFORMATION
  Report Type: Report from Study
  Country: FR (occurrence: FR)
  Receive Date: 20150115
  Receipt Date: 20150123
  Transmission Date: 20150721
  Serious: Yes (Death, Hospitalization)
  Sender: FDA-Public Use
  Company Number: FR-PFIZER INC-2015002594

PATIENT
  Age: 72 Year
  Sex: Male

DRUGS (1)
  1. CRIZOTINIB [Suspect]
     Active Substance: CRIZOTINIB
     Indication: COLORECTAL CANCER
     Dosage: 250 MG, UNK
     Route: 048
     Dates: start: 20141110, end: 20141208

REACTIONS (2)
  - Disease progression [Fatal]
  - Colorectal cancer [Fatal]

NARRATIVE: CASE EVENT DATE: 20141218
